FAERS Safety Report 8764366 (Version 2)
Quarter: 2012Q4

REPORT INFORMATION
  Report Type: 
  Country: FR (occurrence: FR)
  Receive Date: 20120831
  Receipt Date: 20121017
  Transmission Date: 20130627
  Serious: Yes (Hospitalization, Other)
  Sender: FDA-Public Use
  Company Number: PHHY2012FR073389

PATIENT
  Age: 4 Month
  Sex: Female

DRUGS (1)
  1. CODEINE PHOSPHATE [Suspect]
     Indication: PAIN

REACTIONS (7)
  - Diffuse cutaneous mastocytosis [Unknown]
  - Anaphylactic shock [Unknown]
  - Urticaria [Unknown]
  - Blister [Unknown]
  - Diarrhoea [Unknown]
  - Pyrexia [Unknown]
  - Hypoalbuminaemia [Unknown]
